FAERS Safety Report 23171077 (Version 1)
Quarter: 2023Q4

REPORT INFORMATION
  Report Type: Spontaneous
  Country: US (occurrence: US)
  Receive Date: 20231110
  Receipt Date: 20231110
  Transmission Date: 20240110
  Serious: Yes (Other)
  Sender: FDA-Public Use
  Company Number: US-MYLANLABS-2023M1119141

PATIENT
  Sex: Female

DRUGS (7)
  1. DOXORUBICIN [Suspect]
     Active Substance: DOXORUBICIN
     Indication: Invasive ductal breast carcinoma
     Dosage: UNK
     Route: 065
  2. PACLITAXEL [Suspect]
     Active Substance: PACLITAXEL
     Indication: Invasive ductal breast carcinoma
     Dosage: UNK
     Route: 065
  3. TAMOXIFEN [Suspect]
     Active Substance: TAMOXIFEN
     Indication: Invasive ductal breast carcinoma
     Dosage: UNK
     Route: 065
  4. LETROZOLE [Suspect]
     Active Substance: LETROZOLE
     Indication: Invasive ductal breast carcinoma
     Dosage: UNK
     Route: 065
  5. CYCLOPHOSPHAMIDE [Suspect]
     Active Substance: CYCLOPHOSPHAMIDE
     Indication: Invasive ductal breast carcinoma
     Dosage: UNK
     Route: 065
  6. TOREMIFENE [Suspect]
     Active Substance: TOREMIFENE
     Indication: Invasive ductal breast carcinoma
     Dosage: UNK
     Route: 065
  7. PALBOCICLIB [Suspect]
     Active Substance: PALBOCICLIB
     Indication: Invasive ductal breast carcinoma
     Dosage: UNK
     Route: 065

REACTIONS (7)
  - Neuropathy peripheral [Unknown]
  - Drug ineffective [Unknown]
  - Drug intolerance [Unknown]
  - Nausea [Unknown]
  - Anxiety [Recovering/Resolving]
  - Fatigue [Unknown]
  - Constipation [Unknown]
